FAERS Safety Report 16361237 (Version 1)
Quarter: 2019Q3

REPORT INFORMATION
  Report Type: Spontaneous
  Country: US (occurrence: US)
  Receive Date: 20190524
  Receipt Date: 20190524
  Transmission Date: 20191004
  Serious: No
  Sender: FDA-Public Use
  Company Number: None

PATIENT
  Age: 64 Year
  Sex: Female
  Weight: 71.8 kg

DRUGS (1)
  1. LIDOCAINE INFUSION [Suspect]
     Active Substance: LIDOCAINE HYDROCHLORIDE
     Indication: POSTOPERATIVE ANALGESIA
     Dosage: ?          OTHER FREQUENCY:1 MG/HOUR;?
     Route: 041

REACTIONS (2)
  - Hallucination, visual [None]
  - Infusion related reaction [None]

NARRATIVE: CASE EVENT DATE: 20180302
